FAERS Safety Report 18013748 (Version 5)
Quarter: 2020Q4

REPORT INFORMATION
  Report Type: Report from Study
  Country: US (occurrence: US)
  Receive Date: 20200713
  Receipt Date: 20201207
  Transmission Date: 20210113
  Serious: Yes (Other)
  Sender: FDA-Public Use
  Company Number: US-JNJFOC-20200703197

PATIENT
  Age: 38 Year
  Sex: Male

DRUGS (2)
  1. SPRAVATO [Suspect]
     Active Substance: ESKETAMINE
     Indication: DEPRESSION
  2. SPRAVATO [Suspect]
     Active Substance: ESKETAMINE
     Dates: start: 20200630, end: 20200630

REACTIONS (3)
  - Syringe issue [Unknown]
  - Device defective [Recovered/Resolved]
  - Dissociation [Unknown]

NARRATIVE: CASE EVENT DATE: 20200630
